FAERS Safety Report 9680092 (Version 2)
Quarter: 2013Q4

REPORT INFORMATION
  Report Type: Spontaneous
  Country: IT (occurrence: IT)
  Receive Date: 20131111
  Receipt Date: 20131227
  Transmission Date: 20140711
  Serious: Yes (Other)
  Sender: FDA-Public Use
  Company Number: IT-MERCK-1311ITA002326

PATIENT
  Age: 77 Year
  Sex: Female

DRUGS (2)
  1. INVANZ [Suspect]
     Indication: ESCHERICHIA INFECTION
     Dosage: 1 G, QD
     Route: 042
     Dates: start: 20131031, end: 20131102
  2. MEROPENEM HIKMA [Suspect]
     Indication: ESCHERICHIA INFECTION
     Dosage: 2 G, QD.POWDER AND SOLVENT FOR INJECTION SOLUTION
     Route: 042
     Dates: start: 20131031, end: 20131102

REACTIONS (2)
  - Loss of consciousness [Recovering/Resolving]
  - Grand mal convulsion [Recovering/Resolving]
